FAERS Safety Report 13854366 (Version 2)
Quarter: 2017Q3

REPORT INFORMATION
  Report Type: Spontaneous
  Country: JP (occurrence: JP)
  Receive Date: 20170809
  Receipt Date: 20170828
  Transmission Date: 20171127
  Serious: No
  Sender: FDA-Public Use
  Company Number: JP-ALLERGAN-1733415US

PATIENT
  Age: 71 Year
  Sex: Male

DRUGS (6)
  1. SILODOSIN - BP [Suspect]
     Active Substance: SILODOSIN
     Indication: BENIGN PROSTATIC HYPERPLASIA
     Dosage: 2 MG, BID
     Route: 048
     Dates: end: 20170710
  2. SILODOSIN - BP [Suspect]
     Active Substance: SILODOSIN
     Indication: POLLAKIURIA
     Dosage: 4 MG, BID
     Route: 048
     Dates: start: 20170712, end: 20170718
  3. BETANIS [Concomitant]
     Active Substance: MIRABEGRON
     Indication: POLLAKIURIA
     Dosage: 50 MG, QD
     Route: 048
     Dates: start: 20170403
  4. XARELTO [Concomitant]
     Active Substance: RIVAROXABAN
     Indication: PRODUCT USED FOR UNKNOWN INDICATION
     Dosage: UNK UNK, PRN
     Route: 048
  5. SILODOSIN - BP [Suspect]
     Active Substance: SILODOSIN
     Dosage: 2 MG, BID
     Route: 048
     Dates: start: 20170718
  6. ALLOPURINOL. [Concomitant]
     Active Substance: ALLOPURINOL
     Indication: PRODUCT USED FOR UNKNOWN INDICATION
     Dosage: UNK UNK, PRN
     Route: 048

REACTIONS (1)
  - Skin odour abnormal [Recovered/Resolved]

NARRATIVE: CASE EVENT DATE: 20170710
